FAERS Safety Report 10101553 (Version 1)
Quarter: 2014Q2

REPORT INFORMATION
  Report Type: Spontaneous
  Country: IT (occurrence: None)
  Receive Date: 20140422
  Receipt Date: 20140422
  Transmission Date: 20141212
  Serious: Yes (Hospitalization)
  Sender: FDA-Public Use
  Company Number: FK201401357

PATIENT
  Age: 30 Year
  Sex: Female

DRUGS (1)
  1. PIPERACILLIN / TAZOBACTAM [Suspect]
     Indication: OCCUPATIONAL EXPOSURE TO PRODUCT
     Route: 042

REACTIONS (3)
  - Angioedema [None]
  - Dyspnoea [None]
  - Hypersensitivity [None]
